FAERS Safety Report 6885453-1 (Version None)
Quarter: 2010Q3

REPORT INFORMATION
  Report Type: 
  Country: None (occurrence: None)
  Receive Date: 20100729
  Receipt Date: 20081010
  Transmission Date: 20110219
  Serious: Yes (Other)
  Sender: FDA-Public Use
  Company Number: US-PFIZER INC-2008067053

PATIENT
  Sex: Female
  Weight: 76.363 kg

DRUGS (2)
  1. CELEBREX [Suspect]
     Indication: BACK PAIN
     Route: 048
     Dates: start: 20080810
  2. LEVOTHYROXINE SODIUM [Concomitant]

REACTIONS (2)
  - CHEST DISCOMFORT [None]
  - RASH PRURITIC [None]
